FAERS Safety Report 4803630-8 (Version None)
Quarter: 2005Q4

REPORT INFORMATION
  Report Type: 
  Country: None (occurrence: None)
  Receive Date: 20051014
  Receipt Date: 20050928
  Transmission Date: 20060501
  Serious: Yes (Hospitalization)
  Sender: FDA-Public Use
  Company Number: 8012480

PATIENT
  Age: 49 Year
  Sex: Female

DRUGS (3)
  1. KEPPRA [Suspect]
     Dosage: 2000 MG/D
  2. FINLESPSIN [Suspect]
     Dosage: 1200 MG /D
  3. TOPAMAX [Suspect]
     Dosage: 250 MG /D

REACTIONS (3)
  - AGGRESSION [None]
  - DYSPNOEA [None]
  - VERTIGO [None]
